FAERS Safety Report 8921209 (Version 2)
Quarter: 2013Q2

REPORT INFORMATION
  Report Type: Report from Study
  Country: MX (occurrence: MX)
  Receive Date: 20121121
  Receipt Date: 20130510
  Transmission Date: 20140414
  Serious: Yes (Hospitalization)
  Sender: FDA-Public Use
  Company Number: MX-BRISTOL-MYERS SQUIBB COMPANY-16862690

PATIENT
  Age: 67 Year
  Sex: Male
  Weight: 50 kg

DRUGS (4)
  1. ERBITUX [Suspect]
     Indication: SQUAMOUS CELL CARCINOMA OF HEAD AND NECK
     Dosage: LAST DOSE:08AUG12,15OR16JUL12?R#1:12-12JUN12-1DY?R#2:250MG/M2;D1(EXCEPT CY1),D8+D15;IV-28JUN12-ONG
     Route: 042
     Dates: start: 20120612
  2. CARBOPLATIN [Suspect]
     Indication: SQUAMOUS CELL CARCINOMA OF HEAD AND NECK
     Dosage: 1DF: 5 AUC, D1?LAST DOSE ON 15JUL12
     Route: 042
     Dates: start: 20120716
  3. CISPLATIN [Suspect]
     Indication: SQUAMOUS CELL CARCINOMA OF HEAD AND NECK
     Dosage: D1
     Route: 042
     Dates: start: 20120612
  4. 5-FLUOROURACIL [Suspect]
     Indication: SQUAMOUS CELL CARCINOMA OF HEAD AND NECK
     Dosage: D1-4, LAST DOSE ON 18JUL12
     Route: 042
     Dates: start: 20120612

REACTIONS (3)
  - Leukocytosis [Recovered/Resolved]
  - Nausea [Recovered/Resolved]
  - Vomiting [Recovered/Resolved]
